FAERS Safety Report 23875163 (Version 1)
Quarter: 2024Q2

REPORT INFORMATION
  Report Type: Spontaneous
  Country: IN (occurrence: IN)
  Receive Date: 20240520
  Receipt Date: 20240520
  Transmission Date: 20240716
  Serious: Yes (Other)
  Sender: FDA-Public Use
  Company Number: IN-SANDOZ-SDZ2024IN023451

PATIENT
  Sex: Male

DRUGS (2)
  1. TACROLIMUS [Suspect]
     Active Substance: TACROLIMUS
     Dosage: 1 MG, TID
     Route: 048
     Dates: start: 20181027
  2. TACROLIMUS [Suspect]
     Active Substance: TACROLIMUS
     Indication: Renal transplant
     Dosage: UNK
     Route: 048

REACTIONS (6)
  - New onset diabetes after transplantation [Unknown]
  - Pulmonary tuberculosis [Unknown]
  - Ileal perforation [Unknown]
  - Laboratory test abnormal [Unknown]
  - Vital functions abnormal [Unknown]
  - Hypertension [Unknown]
